FAERS Safety Report 17553652 (Version 1)
Quarter: 2020Q1

REPORT INFORMATION
  Report Type: Spontaneous
  Country: FR (occurrence: FR)
  Receive Date: 20200317
  Receipt Date: 20200317
  Transmission Date: 20200409
  Serious: Yes (Hospitalization)
  Sender: FDA-Public Use
  Company Number: FR-US-PROVELL PHARMACEUTICALS LLC-E2B_90075857

PATIENT
  Age: 76 Year
  Sex: Female
  Weight: 77 kg

DRUGS (6)
  1. LYSANXIA [Suspect]
     Active Substance: PRAZEPAM
     Indication: DEPRESSION
     Route: 048
     Dates: start: 2010
  2. PROZAC [Suspect]
     Active Substance: FLUOXETINE HYDROCHLORIDE
     Indication: DEPRESSION
     Route: 048
     Dates: start: 2018
  3. LEVOFLOXACINE                      /01278901/ [Suspect]
     Active Substance: LEVOFLOXACIN
     Indication: URINARY TRACT INFECTION
     Route: 048
     Dates: start: 20200212, end: 20200214
  4. THERALENE [Suspect]
     Active Substance: TRIMEPRAZINE
     Indication: DEPRESSION
     Route: 048
     Dates: start: 201909
  5. LAMICTAL [Suspect]
     Active Substance: LAMOTRIGINE
     Indication: DEPRESSION
     Route: 048
     Dates: start: 201909, end: 20200221
  6. LEVOTHYROX [Suspect]
     Active Substance: LEVOTHYROXINE
     Indication: HYPOTHYROIDISM
     Route: 048
     Dates: start: 2010

REACTIONS (2)
  - Pruritus [Recovering/Resolving]
  - Rash maculo-papular [Not Recovered/Not Resolved]

NARRATIVE: CASE EVENT DATE: 20200214
